FAERS Safety Report 26214764 (Version 1)
Quarter: 2025Q4

REPORT INFORMATION
  Report Type: Report from Study
  Country: US (occurrence: US)
  Receive Date: 20251230
  Receipt Date: 20251230
  Transmission Date: 20260117
  Serious: Yes (Other)
  Sender: MERCK SHARP & DOHME LLC
  Company Number: US-009507513-2323228

PATIENT
  Sex: Female
  Weight: 56.245 kg

DRUGS (33)
  1. WINREVAIR [Suspect]
     Active Substance: SOTATERCEPT-CSRK
     Indication: Pulmonary arterial hypertension
     Dosage: 0.3 ML/ Q3W
     Route: 058
     Dates: start: 20250822
  2. WINREVAIR [Suspect]
     Active Substance: SOTATERCEPT-CSRK
     Dosage: 0.8 ML, Q3W
     Route: 058
     Dates: start: 202508
  3. WINREVAIR [Suspect]
     Active Substance: SOTATERCEPT-CSRK
     Dosage: 0.8 ML, Q3W
     Route: 058
     Dates: start: 202508
  4. WINREVAIR [Suspect]
     Active Substance: SOTATERCEPT-CSRK
     Dosage: 0.8 ML/ Q3W
     Route: 058
     Dates: start: 20250822
  5. WINREVAIR [Suspect]
     Active Substance: SOTATERCEPT-CSRK
     Dates: start: 202509
  6. WINREVAIR [Suspect]
     Active Substance: SOTATERCEPT-CSRK
     Dates: start: 20251027
  7. ADEMPAS [Concomitant]
     Active Substance: RIOCIGUAT
     Dosage: STRENGTH: 1 MG
     Dates: start: 20250822
  8. TYVASO [Suspect]
     Active Substance: TREPROSTINIL
     Indication: Pulmonary arterial hypertension
     Dosage: 72 UG, QID
     Route: 055
     Dates: end: 20240812
  9. TYVASO [Suspect]
     Active Substance: TREPROSTINIL
     Indication: Pulmonary arterial hypertension
     Dosage: 54  G, (WEANING OFF BY 3 BREATHS EVERY WEEK),
     Route: 055
     Dates: start: 20240812, end: 20240913
  10. TYVASO [Suspect]
     Active Substance: TREPROSTINIL
     Indication: Pulmonary arterial hypertension
     Dosage: 36  G, QID
     Route: 055
     Dates: start: 20240913
  11. TYVASO [Suspect]
     Active Substance: TREPROSTINIL
     Indication: Pulmonary arterial hypertension
     Dosage: 54  G, QID
     Route: 055
     Dates: start: 20240913
  12. VITAMINS [Concomitant]
     Active Substance: VITAMINS
  13. MELATONIN [Concomitant]
     Active Substance: MELATONIN
     Dosage: STRENGTH: 10 MG
  14. TYLENOL [Concomitant]
     Active Substance: ACETAMINOPHEN
     Dosage: STRENGTH: 500 MG
  15. ASPIRIN [Concomitant]
     Active Substance: ASPIRIN
     Dosage: STRENGTH: 81 MG, CHEW
  16. JARDIANCE [Concomitant]
     Active Substance: EMPAGLIFLOZIN
     Dosage: STRENGTH: 10 MG
  17. ENTRESTO [Concomitant]
     Active Substance: SACUBITRIL\VALSARTAN
     Indication: Cardiac failure congestive
     Dosage: STRENGTH: 24-26 MG
  18. DEMADEX [Concomitant]
     Active Substance: TORSEMIDE
     Dosage: STRENGTH: 10 MG
  19. PEPCID [Concomitant]
     Active Substance: FAMOTIDINE
     Dosage: STRENGTH: 20 MG
  20. SYNTHROID/ LEVOTHROID [Concomitant]
     Dosage: STRENGTH: 25 MCG
  21. FLONASE [Concomitant]
     Active Substance: FLUTICASONE PROPIONATE
     Dosage: STRENGTH: 50 MCG/ACT
     Route: 045
  22. CRESTOR [Concomitant]
     Active Substance: ROSUVASTATIN CALCIUM
     Dosage: STRENGTH: 10 MG
  23. XANAX [Concomitant]
     Active Substance: ALPRAZOLAM
     Dosage: STRENGTH: 0.25 MG
  24. DESYREL [Concomitant]
     Active Substance: TRAZODONE HYDROCHLORIDE
     Dosage: STRENGTH: 100 MG
  25. LASIX [Concomitant]
     Active Substance: FUROSEMIDE
     Dates: end: 20250929
  26. LASIX [Concomitant]
     Active Substance: FUROSEMIDE
     Dates: start: 20250930
  27. SPIRONOLACTONE [Concomitant]
     Active Substance: SPIRONOLACTONE
  28. TOPROL XL [Concomitant]
     Active Substance: METOPROLOL SUCCINATE
  29. Brompheniramine maleate, pseudoephedrine hcl, dextromethorphan hydr... [Concomitant]
  30. AUGMENTIN [Concomitant]
     Active Substance: AMOXICILLIN\CLAVULANATE POTASSIUM
  31. TREPROSTINIL [Concomitant]
     Active Substance: TREPROSTINIL
     Dates: start: 2025, end: 20251013
  32. TREPROSTINIL [Concomitant]
     Active Substance: TREPROSTINIL
     Dates: start: 20251014
  33. MINERALS\VITAMINS [Concomitant]
     Active Substance: MINERALS\VITAMINS
     Route: 048

REACTIONS (22)
  - Atrial fibrillation [Unknown]
  - Epistaxis [Recovered/Resolved]
  - Gastrointestinal disorder [Recovered/Resolved]
  - Swelling face [Unknown]
  - Epistaxis [Recovered/Resolved]
  - Balance disorder [Unknown]
  - Headache [Recovering/Resolving]
  - Cough [Unknown]
  - Hypotension [Unknown]
  - Periorbital swelling [Unknown]
  - Decreased appetite [Unknown]
  - Diarrhoea [Unknown]
  - Gastrointestinal pain [Unknown]
  - Fatigue [Recovering/Resolving]
  - Flatulence [Unknown]
  - Depression [Unknown]
  - Non-pitting oedema [Unknown]
  - Joint swelling [Unknown]
  - Abdominal distension [Unknown]
  - Weight increased [Recovering/Resolving]
  - Dizziness [Unknown]
  - Swelling [Recovering/Resolving]

NARRATIVE: CASE EVENT DATE: 20250101
